FAERS Safety Report 17640909 (Version 3)
Quarter: 2020Q3

REPORT INFORMATION
  Report Type: Spontaneous
  Country: AU (occurrence: AU)
  Receive Date: 20200407
  Receipt Date: 20200824
  Transmission Date: 20201102
  Serious: Yes (Other)
  Sender: FDA-Public Use
  Company Number: AU-JNJFOC-20200340380

PATIENT
  Age: 34 Year
  Sex: Female

DRUGS (2)
  1. INFLIXIMAB, RECOMBINANT [Suspect]
     Active Substance: INFLIXIMAB
     Indication: NEUROSARCOIDOSIS
     Route: 042
     Dates: start: 2014, end: 2016
  2. PREDNISOLONE. [Suspect]
     Active Substance: PREDNISOLONE
     Indication: NEUROSARCOIDOSIS
     Dosage: SINCE 20 YEARS
     Route: 065

REACTIONS (7)
  - Product use in unapproved indication [Unknown]
  - Disease progression [Unknown]
  - Blindness [Unknown]
  - Neurosarcoidosis [Unknown]
  - Lymphoma [Unknown]
  - Optic neuritis [Unknown]
  - Off label use [Unknown]

NARRATIVE: CASE EVENT DATE: 2014
